FAERS Safety Report 21901935 (Version 1)
Quarter: 2023Q1

REPORT INFORMATION
  Report Type: Spontaneous
  Country: US (occurrence: US)
  Receive Date: 20230124
  Receipt Date: 20230124
  Transmission Date: 20230418
  Serious: No
  Sender: FDA-Public Use
  Company Number: US-GLAXOSMITHKLINE-US2023AMR006386

PATIENT
  Sex: Female

DRUGS (18)
  1. ZEJULA [Suspect]
     Active Substance: NIRAPARIB
     Indication: Ovarian cancer
     Dosage: 200 MG, QD
     Route: 048
     Dates: start: 20220915
  2. PAXIL [Suspect]
     Active Substance: PAROXETINE HYDROCHLORIDE
     Indication: Product used for unknown indication
     Dosage: UNK
  3. MELATONIN CAPSULE [Concomitant]
     Indication: Product used for unknown indication
     Dosage: 10 MG
  4. CLARITIN-D 12 HOUR [Concomitant]
     Active Substance: LORATADINE\PSEUDOEPHEDRINE SULFATE
     Indication: Product used for unknown indication
     Dosage: UNK
  5. TYLENOL [Concomitant]
     Active Substance: ACETAMINOPHEN
     Indication: Product used for unknown indication
     Dosage: 325 MG
  6. SENNA S TABLETS [Concomitant]
     Indication: Product used for unknown indication
     Dosage: 6MG-50MG
  7. COLLAGEN CAPSULES (BRAND UNKNOWN) [Concomitant]
     Indication: Product used for unknown indication
     Dosage: 125-740MG
  8. CALCIUM\MAGNESIUM\VITAMIN D\ZINC [Concomitant]
     Active Substance: CALCIUM\MAGNESIUM\VITAMIN D\ZINC
     Dosage: UNK
  9. VITAMIN D3 TABLET [Concomitant]
     Indication: Product used for unknown indication
     Dosage: 50 MG
  10. PROBIOTIC CAPSULE [Concomitant]
     Indication: Product used for unknown indication
     Dosage: 250 MG
  11. THERATEARS [Concomitant]
     Active Substance: CARBOXYMETHYLCELLULOSE SODIUM
     Indication: Product used for unknown indication
     Dosage: 0.25 % DROPERETTE
  12. RESTASIS [Concomitant]
     Active Substance: CYCLOSPORINE
     Indication: Product used for unknown indication
     Dosage: 0.05 % DROPERETTE,
  13. ZINC TABLET [Concomitant]
     Indication: Product used for unknown indication
     Dosage: 50 MG
  14. ASPIRIN CHEWABLE TABLET [Concomitant]
     Indication: Product used for unknown indication
     Dosage: 81 MG
  15. LEVOTHYROXINE [Concomitant]
     Active Substance: LEVOTHYROXINE
     Indication: Product used for unknown indication
     Dosage: 100 UG
  16. ONDANSETRON HYDROCHLORIDE [Concomitant]
     Active Substance: ONDANSETRON HYDROCHLORIDE
     Indication: Product used for unknown indication
     Dosage: 8 MG
  17. ANASTROZOLE TABLET [Concomitant]
     Indication: Product used for unknown indication
     Dosage: 1 MG
  18. TOPROL XL ER [Concomitant]
     Indication: Product used for unknown indication
     Dosage: 25 MG

REACTIONS (7)
  - Constipation [Recovering/Resolving]
  - Joint swelling [Recovering/Resolving]
  - Oedema [Recovering/Resolving]
  - Headache [Recovering/Resolving]
  - Carbohydrate antigen 125 increased [Recovering/Resolving]
  - Drug hypersensitivity [Unknown]
  - Therapeutic response unexpected [Unknown]
